FAERS Safety Report 9046233 (Version 1)
Quarter: 2013Q1

REPORT INFORMATION
  Report Type: Spontaneous
  Country: US (occurrence: None)
  Receive Date: 20130128
  Receipt Date: 20130128
  Transmission Date: 20140127
  Serious: No
  Sender: FDA-Public Use
  Company Number: None

PATIENT
  Sex: Female
  Weight: 41.05 kg

DRUGS (1)
  1. METHOTREXATE [Suspect]
     Dates: end: 20040917

REACTIONS (2)
  - Headache [None]
  - Pineal gland cyst [None]
